FAERS Safety Report 26153029 (Version 1)
Quarter: 2025Q4

REPORT INFORMATION
  Report Type: Spontaneous
  Country: US (occurrence: US)
  Receive Date: 20251214
  Receipt Date: 20251214
  Transmission Date: 20260118
  Serious: No
  Sender: MERCK SHARP & DOHME LLC
  Company Number: US-009507513-2352780

PATIENT
  Sex: Female

DRUGS (1)
  1. ANTIVENIN [Suspect]
     Active Substance: BLACK WIDOW SPIDER (LATRODECTUS MACTANS) IMMUNE GLOBULIN ANTIVENIN (EQUINE)
     Indication: Venom poisoning

REACTIONS (1)
  - Exposure during pregnancy [Unknown]
